FAERS Safety Report 10407726 (Version 2)
Quarter: 2014Q3

REPORT INFORMATION
  Report Type: Spontaneous
  Country: US (occurrence: US)
  Receive Date: 20140825
  Receipt Date: 20140917
  Transmission Date: 20150326
  Serious: Yes (Life-Threatening, Hospitalization, Disabling, Other)
  Sender: FDA-Public Use
  Company Number: US-TEVA-503835USA

PATIENT
  Age: 66 Year
  Sex: Male

DRUGS (10)
  1. RITUXAN [Suspect]
     Active Substance: RITUXIMAB
     Indication: LYMPHOCYTIC LYMPHOMA
  2. BACTRIM DS [Concomitant]
     Active Substance: SULFAMETHOXAZOLE\TRIMETHOPRIM
     Indication: PROPHYLAXIS
     Dosage: UNK UNK, OTHER (1 BID, 2 DAYS PER WEEK)
     Route: 065
     Dates: start: 201104
  3. TYLENOL 8 HR [Concomitant]
     Active Substance: ACETAMINOPHEN
     Indication: PRODUCT USED FOR UNKNOWN INDICATION
     Dosage: 500 MG, 3 IN 8 HOUR
     Route: 065
  4. BENDAMUSTINE HYDROCHORIDE [Suspect]
     Active Substance: BENDAMUSTINE
     Indication: CHRONIC LYMPHOCYTIC LEUKAEMIA
     Dosage: UNK, UNKNOWN FREQ.
     Route: 042
     Dates: start: 201106, end: 201109
  5. RITUXAN [Suspect]
     Active Substance: RITUXIMAB
     Indication: CHRONIC LYMPHOCYTIC LEUKAEMIA
     Dosage: UNK UNK, UNKNOWN FREQ.
     Route: 065
     Dates: start: 201106, end: 201109
  6. BENDAMUSTINE HYDROCHORIDE [Suspect]
     Active Substance: BENDAMUSTINE
     Dosage: 95 MG/M2, CYCLIC (1 IN 1 CYCLIC) 5TH CYCLE
     Route: 042
     Dates: start: 20110921, end: 20110922
  7. VITAMIN D                          /00107901/ [Concomitant]
     Active Substance: ERGOCALCIFEROL
     Indication: VITAMIN D DEFICIENCY
     Route: 065
  8. BENDAMUSTINE HYDROCHORIDE [Suspect]
     Active Substance: BENDAMUSTINE
     Indication: LYMPHOCYTIC LYMPHOMA
     Route: 042
  9. BENDAMUSTINE HYDROCHORIDE [Suspect]
     Active Substance: BENDAMUSTINE
     Route: 042
  10. BENDAMUSTINE HYDROCHORIDE [Suspect]
     Active Substance: BENDAMUSTINE
     Route: 042

REACTIONS (7)
  - Abdominal hernia [Unknown]
  - Thrombocytopenia [Recovered/Resolved]
  - Enterobacter sepsis [Recovered/Resolved]
  - Neutropenia [Recovered/Resolved]
  - Bone marrow failure [Recovered/Resolved]
  - Mucosal inflammation [Recovered/Resolved with Sequelae]
  - Malnutrition [Recovered/Resolved]

NARRATIVE: CASE EVENT DATE: 201110
